FAERS Safety Report 14939312 (Version 2)
Quarter: 2018Q2

REPORT INFORMATION
  Report Type: Spontaneous
  Country: BR (occurrence: BR)
  Receive Date: 20180525
  Receipt Date: 20180613
  Transmission Date: 20180711
  Serious: No
  Sender: FDA-Public Use
  Company Number: BR-009507513-1805BRA008303

PATIENT
  Sex: Female
  Weight: 69 kg

DRUGS (3)
  1. INSULIN HUMAN, ISOPHANE [Suspect]
     Active Substance: INSULIN HUMAN
     Indication: BLOOD GLUCOSE INCREASED
     Dosage: 14 IU, BEFORE SLEEPING
  2. JANUMET [Suspect]
     Active Substance: METFORMIN HYDROCHLORIDE\SITAGLIPTIN PHOSPHATE
     Indication: DIABETES MELLITUS
     Dosage: 1 TABLET AT NIGHT
     Route: 048
  3. GLICLAZIDE [Concomitant]
     Active Substance: GLICLAZIDE
     Indication: DIABETES MELLITUS
     Dosage: 2 TABLETS DAILY
     Route: 048

REACTIONS (7)
  - Incorrect dose administered [Unknown]
  - Drug ineffective [Not Recovered/Not Resolved]
  - Drug dose omission [Unknown]
  - Drug ineffective [Recovered/Resolved]
  - Blood glucose increased [Recovered/Resolved]
  - Urinary tract infection [Recovered/Resolved]
  - Intentional dose omission [Unknown]

NARRATIVE: CASE EVENT DATE: 2018
